FAERS Safety Report 22062928 (Version 2)
Quarter: 2023Q1

REPORT INFORMATION
  Report Type: Spontaneous
  Country: GB (occurrence: None)
  Receive Date: 20230306
  Receipt Date: 20230308
  Transmission Date: 20230418
  Serious: Yes (Other)
  Sender: FDA-Public Use
  Company Number: GB-MHRA-MED-202302231400521130-HTGLY

PATIENT
  Age: 52 Year
  Sex: Female

DRUGS (1)
  1. HERCEPTIN [Suspect]
     Active Substance: TRASTUZUMAB
     Indication: Product used for unknown indication
     Dosage: 600MG SC EVERY 21DAYS; ;
     Route: 058

REACTIONS (1)
  - Echocardiogram [Recovering/Resolving]

NARRATIVE: CASE EVENT DATE: 20221118
